FAERS Safety Report 11874472 (Version 1)
Quarter: 2015Q4

REPORT INFORMATION
  Report Type: Spontaneous
  Country: None (occurrence: None)
  Receive Date: 20151228
  Receipt Date: 20151228
  Transmission Date: 20160305
  Serious: Yes (Disabling)
  Sender: FDA-Public Use
  Company Number: None

PATIENT
  Age: 60 Year
  Sex: Male
  Weight: 88.91 kg

DRUGS (1)
  1. OXYDONE AND TYLENOL 10/325 ACTAVIS [Suspect]
     Active Substance: ACETAMINOPHEN\OXYCODONE HYDROCHLORIDE
     Indication: SPINAL PAIN
     Route: 048
     Dates: start: 20151216, end: 20151219

REACTIONS (14)
  - Dysuria [None]
  - Dehydration [None]
  - Product substitution issue [None]
  - Nausea [None]
  - Impaired driving ability [None]
  - Migraine [None]
  - Dizziness [None]
  - Abasia [None]
  - Impaired work ability [None]
  - Pyrexia [None]
  - Palpitations [None]
  - Drug ineffective [None]
  - Vomiting [None]
  - Mood swings [None]

NARRATIVE: CASE EVENT DATE: 20151216
